FAERS Safety Report 7648494-2 (Version None)
Quarter: 2011Q3

REPORT INFORMATION
  Report Type: 
  Country: None (occurrence: None)
  Receive Date: 20110801
  Receipt Date: 20110725
  Transmission Date: 20111222
  Serious: Yes (Other)
  Sender: FDA-Public Use
  Company Number: FR-GILEAD-2011-0042270

PATIENT
  Sex: Male
  Weight: 2.22 kg

DRUGS (8)
  1. TRUVADA [Suspect]
     Indication: HIV INFECTION
     Route: 064
  2. CLARITHROMYCIN [Suspect]
     Route: 064
     Dates: start: 20100301, end: 20100927
  3. MYAMBUTOL [Suspect]
     Route: 064
     Dates: start: 20100301, end: 20100927
  4. RIFABUTIN [Suspect]
     Route: 064
     Dates: start: 20100301, end: 20100927
  5. BACTRIM [Suspect]
     Route: 064
  6. VALGANCICLOVIR [Suspect]
     Route: 064
     Dates: start: 20100301, end: 20100927
  7. KALETRA [Suspect]
     Route: 064
  8. RIMIFON [Suspect]
     Route: 064
     Dates: start: 20100301, end: 20100927

REACTIONS (7)
  - ATRIAL SEPTAL DEFECT [None]
  - MICROTIA [None]
  - VENTRICULAR SEPTAL DEFECT [None]
  - POLYDACTYLY [None]
  - OESOPHAGEAL ATRESIA [None]
  - HYPOSPADIAS [None]
  - KIDNEY MALFORMATION [None]
